FAERS Safety Report 25608722 (Version 1)
Quarter: 2025Q3

REPORT INFORMATION
  Report Type: Spontaneous
  Country: PE (occurrence: PE)
  Receive Date: 20250726
  Receipt Date: 20250726
  Transmission Date: 20251021
  Serious: Yes (Hospitalization, Other)
  Sender: NOVITIUM PHARMA
  Company Number: PE-NOVITIUMPHARMA-2025PENVP01792

PATIENT
  Age: 24 Year
  Sex: Male

DRUGS (2)
  1. PYRAZINAMIDE [Suspect]
     Active Substance: PYRAZINAMIDE
     Indication: Tuberculosis
  2. LINEZOLID [Concomitant]
     Active Substance: LINEZOLID
     Indication: Tuberculosis

REACTIONS (1)
  - Drug reaction with eosinophilia and systemic symptoms [Recovered/Resolved]
